FAERS Safety Report 21673007 (Version 1)
Quarter: 2022Q4

REPORT INFORMATION
  Report Type: Spontaneous
  Country: SG (occurrence: SG)
  Receive Date: 20221202
  Receipt Date: 20221202
  Transmission Date: 20230112
  Serious: Yes (Other)
  Sender: FDA-Public Use
  Company Number: SG-STRIDES ARCOLAB LIMITED-2022SP015901

PATIENT
  Age: 63 Year
  Sex: Male

DRUGS (3)
  1. ETOPOSIDE [Suspect]
     Active Substance: ETOPOSIDE
     Indication: Benign oesophageal neoplasm
     Dosage: UNK, CYCLICAL (PALLIATIVE CHEMOTHERAPY AIMED AT THREE WEEKLY )
     Route: 065
  2. CARBOPLATIN [Concomitant]
     Active Substance: CARBOPLATIN
     Indication: Benign oesophageal neoplasm
     Dosage: UNK, CYCLICAL (PALLIATIVE CHEMOTHERAPY AIMED AT THREE WEEKLY) (TOTAL OF 4 CYCLES)
     Route: 065
  3. PEGLASTA [Concomitant]
     Indication: Benign oesophageal neoplasm
     Dosage: UNK, CYCLICAL (TOTAL OF 4 CYCLES) (PALLIATIVE CHEMOTHERAPY AIMED AT THREE WEEKLY)
     Route: 065

REACTIONS (2)
  - Bradycardia [Unknown]
  - Off label use [Unknown]
